FAERS Safety Report 8984928 (Version 2)
Quarter: 2013Q1

REPORT INFORMATION
  Report Type: Spontaneous
  Country: IT (occurrence: IT)
  Receive Date: 20121226
  Receipt Date: 20130109
  Transmission Date: 20140127
  Serious: Yes (Death, Other)
  Sender: FDA-Public Use
  Company Number: PHHY2012IT118609

PATIENT
  Age: 69 Year
  Sex: Female

DRUGS (3)
  1. ZOMETA [Suspect]
     Indication: BREAST CANCER
     Dosage: 4 MG, PER MONTH
     Route: 042
     Dates: start: 20061001, end: 20071101
  2. AREDIA [Suspect]
     Indication: BREAST CANCER
     Dosage: 90 MG, PER MONTH
     Route: 042
     Dates: start: 20020101, end: 20050901
  3. AUGMENTIN                               /UNK/ [Concomitant]
     Dosage: UNK UKN, UNK

REACTIONS (2)
  - Breast cancer [Fatal]
  - Osteonecrosis of jaw [Unknown]
